FAERS Safety Report 9136080 (Version 1)
Quarter: 2013Q1

REPORT INFORMATION
  Report Type: Spontaneous
  Country: US (occurrence: US)
  Receive Date: 20130304
  Receipt Date: 20130304
  Transmission Date: 20140127
  Serious: No
  Sender: FDA-Public Use
  Company Number: US-ABBOTT-12P-163-0973186-00

PATIENT
  Age: 66 Year
  Sex: Male

DRUGS (2)
  1. ANDROGEL 1% [Suspect]
     Indication: BLOOD TESTOSTERONE DECREASED
     Route: 061
     Dates: start: 201207
  2. UNKNOWN SUPPLEMENTS [Concomitant]
     Indication: SUPPLEMENTATION THERAPY

REACTIONS (4)
  - Application site pain [Not Recovered/Not Resolved]
  - Application site exfoliation [Recovering/Resolving]
  - Hot flush [Not Recovered/Not Resolved]
  - Application site pruritus [Not Recovered/Not Resolved]
